FAERS Safety Report 15005629 (Version 3)
Quarter: 2018Q3

REPORT INFORMATION
  Report Type: Spontaneous
  Country: US (occurrence: US)
  Receive Date: 20180613
  Receipt Date: 20180712
  Transmission Date: 20181010
  Serious: No
  Sender: FDA-Public Use
  Company Number: US-PFIZER INC-2018241765

PATIENT
  Age: 78 Year
  Sex: Female

DRUGS (7)
  1. LAC?HYDRIN [Concomitant]
     Active Substance: AMMONIUM LACTATE
     Indication: XEROSIS
     Dosage: UNK, 1 APP ONCE A DAY
     Route: 061
  2. VITAMIN B12 [Concomitant]
     Active Substance: CYANOCOBALAMIN
     Dosage: 1000 UG, ONCE A DAY
     Route: 048
  3. EUCRISA [Suspect]
     Active Substance: CRISABOROLE
     Indication: ECZEMA
     Dosage: UNK, 2X/DAY
     Route: 061
     Dates: start: 20180410, end: 20180411
  4. EUCRISA [Suspect]
     Active Substance: CRISABOROLE
     Indication: DERMATITIS ATOPIC
     Dosage: UNK
  5. LOTRISONE [Concomitant]
     Active Substance: BETAMETHASONE DIPROPIONATE\CLOTRIMAZOLE
     Dosage: UNK, 1 APP 2 TIMES A DAY
     Route: 061
  6. CLOBETASOL [Concomitant]
     Active Substance: CLOBETASOL
     Dosage: UNK, APPLY EXTERNALLY TO THE AFFECTED AREA TWICE DAILY
  7. FERROUS GLUCONATE [Concomitant]
     Active Substance: FERROUS GLUCONATE
     Dosage: 324 MG, 1X/DAY (38 MG ELEMENTAL IRON)
     Route: 048

REACTIONS (2)
  - Drug hypersensitivity [Unknown]
  - Application site pain [Recovered/Resolved]

NARRATIVE: CASE EVENT DATE: 20180410
